FAERS Safety Report 12201177 (Version 1)
Quarter: 2016Q1

REPORT INFORMATION
  Report Type: Spontaneous
  Country: US (occurrence: US)
  Receive Date: 20160322
  Receipt Date: 20160322
  Transmission Date: 20160526
  Serious: No
  Sender: FDA-Public Use
  Company Number: US-SA-2015SA057728

PATIENT
  Age: 62 Year
  Sex: Male

DRUGS (2)
  1. NASACORT ALLERGY 24HR [Suspect]
     Active Substance: TRIAMCINOLONE ACETONIDE
     Dosage: NASACORT 24 HOUR.?2 SPRAYS TO EACH NOSTRIL.
     Route: 045
     Dates: start: 20150428
  2. FLONASE [Concomitant]
     Active Substance: FLUTICASONE PROPIONATE
     Route: 065
     Dates: start: 20150427

REACTIONS (4)
  - Burning sensation [Unknown]
  - Condition aggravated [Unknown]
  - Paraesthesia [Unknown]
  - Inflammation [Unknown]
